FAERS Safety Report 6896775-2 (Version None)
Quarter: 2010Q3

REPORT INFORMATION
  Report Type: 
  Country: None (occurrence: None)
  Receive Date: 20100802
  Receipt Date: 20070327
  Transmission Date: 20110219
  Serious: No
  Sender: FDA-Public Use
  Company Number: US-PFIZER INC-2007002783

PATIENT
  Sex: Male
  Weight: 36.74 kg

DRUGS (6)
  1. LYRICA [Suspect]
     Indication: NEUROPATHY PERIPHERAL
     Dates: start: 20060801, end: 20061205
  2. HYDROCODONE BITARTRATE [Concomitant]
  3. WARFARIN SODIUM [Concomitant]
  4. LISINOPRIL [Concomitant]
  5. NAPROXEN [Concomitant]
  6. DOCUSATE SODIUM [Concomitant]

REACTIONS (1)
  - DRUG SCREEN FALSE POSITIVE [None]
